FAERS Safety Report 21606165 (Version 3)
Quarter: 2023Q2

REPORT INFORMATION
  Report Type: Report from Study
  Country: BR (occurrence: BR)
  Receive Date: 20221117
  Receipt Date: 20230504
  Transmission Date: 20230721
  Serious: Yes (Other)
  Sender: FDA-Public Use
  Company Number: BR-JNJFOC-20221125404

PATIENT
  Sex: Female
  Weight: 82 kg

DRUGS (1)
  1. INFLIXIMAB [Suspect]
     Active Substance: INFLIXIMAB
     Indication: Crohn^s disease
     Dosage: , 5 OR 6 VIALS
     Route: 041
     Dates: start: 2021, end: 202207

REACTIONS (2)
  - Tuberculosis [Unknown]
  - Drug ineffective [Unknown]
